FAERS Safety Report 5888428-4 (Version None)
Quarter: 2008Q3

REPORT INFORMATION
  Report Type: 
  Country: None (occurrence: None)
  Receive Date: 20080918
  Receipt Date: 20080910
  Transmission Date: 20090109
  Serious: Yes (Other)
  Sender: FDA-Public Use
  Company Number: JP-PFIZER INC-2008076418

PATIENT
  Age: 29 Year
  Sex: Male

DRUGS (1)
  1. CARDENALIN [Suspect]
     Indication: PREOPERATIVE CARE
     Dosage: DAILY DOSE:3MG
     Route: 048
     Dates: start: 20080314

REACTIONS (1)
  - EJACULATION DISORDER [None]
